FAERS Safety Report 4467942-2 (Version None)
Quarter: 2004Q4

REPORT INFORMATION
  Report Type: 
  Country: None (occurrence: None)
  Receive Date: 20041007
  Receipt Date: 20040927
  Transmission Date: 20050328
  Serious: Yes (Other)
  Sender: FDA-Public Use
  Company Number: PHFR2004GB03664

PATIENT
  Age: 16 Year
  Sex: Male

DRUGS (1)
  1. VOLTAROL RETARD [Suspect]
     Route: 048
     Dates: start: 19920109, end: 19920121

REACTIONS (1)
  - BRONCHOSPASM [None]
